FAERS Safety Report 10174653 (Version 6)
Quarter: 2014Q3

REPORT INFORMATION
  Report Type: Spontaneous
  Country: US (occurrence: US)
  Receive Date: 20140515
  Receipt Date: 20140915
  Transmission Date: 20150326
  Serious: Yes (Other)
  Sender: FDA-Public Use
  Company Number: US-GLAXOSMITHKLINE-A1073221A

PATIENT
  Age: 44 Year
  Sex: Female

DRUGS (14)
  1. TYLENOL WITH CODEINE [Suspect]
     Active Substance: ACETAMINOPHEN\CODEINE PHOSPHATE
     Indication: PRODUCT USED FOR UNKNOWN INDICATION
     Dosage: 8TAB UNKNOWN
     Route: 065
  2. LORATADINE. [Concomitant]
     Active Substance: LORATADINE
  3. FLONASE [Suspect]
     Active Substance: FLUTICASONE PROPIONATE
     Indication: ILL-DEFINED DISORDER
     Dosage: 2SPR PER DAY
     Route: 045
     Dates: start: 20100811
  4. LOVAZA [Suspect]
     Active Substance: OMEGA-3-ACID ETHYL ESTERS
     Indication: PRODUCT USED FOR UNKNOWN INDICATION
     Dosage: 2CAP TWICE PER DAY
     Route: 048
     Dates: start: 20110511
  5. POTASSIUM CITRATE. [Concomitant]
     Active Substance: POTASSIUM CITRATE
  6. CLONAZEPAM. [Concomitant]
     Active Substance: CLONAZEPAM
  7. ESTROGEN [Suspect]
     Active Substance: ESTRONE\SUS SCROFA OVARY
     Indication: PRODUCT USED FOR UNKNOWN INDICATION
     Route: 065
     Dates: end: 201010
  8. CRESTOR [Concomitant]
     Active Substance: ROSUVASTATIN CALCIUM
  9. FLEXERIL [Concomitant]
     Active Substance: CYCLOBENZAPRINE HYDROCHLORIDE
  10. TYLENOL WITH CODEINE [Concomitant]
     Active Substance: ACETAMINOPHEN\CODEINE PHOSPHATE
  11. IMITREX [Suspect]
     Active Substance: SUMATRIPTAN\SUMATRIPTAN SUCCINATE
     Indication: MIGRAINE
     Dosage: 50MG AS REQUIRED
     Route: 048
     Dates: start: 201005
  12. ANTIDEPRESSANT [Suspect]
     Active Substance: UNSPECIFIED INGREDIENT
     Indication: PRODUCT USED FOR UNKNOWN INDICATION
     Route: 065
  13. TRILEPTAL [Concomitant]
     Active Substance: OXCARBAZEPINE
  14. IMITREX [Suspect]
     Active Substance: SUMATRIPTAN\SUMATRIPTAN SUCCINATE
     Indication: MIGRAINE
     Dosage: 5MG AS REQUIRED
     Route: 045
     Dates: start: 201005

REACTIONS (12)
  - Multiple allergies [Unknown]
  - Influenza [Unknown]
  - Nausea [Unknown]
  - Drug dose omission [Unknown]
  - Hepatic neoplasm [Unknown]
  - Headache [Unknown]
  - Nasopharyngitis [Unknown]
  - Menorrhagia [Unknown]
  - Adverse event [Unknown]
  - Migraine [Unknown]
  - Endometriosis [Unknown]
  - Hypersensitivity [Unknown]

NARRATIVE: CASE EVENT DATE: 201009
